FAERS Safety Report 11169598 (Version 1)
Quarter: 2015Q2

REPORT INFORMATION
  Report Type: Spontaneous
  Country: US (occurrence: US)
  Receive Date: 20150605
  Receipt Date: 20150605
  Transmission Date: 20150821
  Serious: No
  Sender: FDA-Public Use
  Company Number: US-BIOMARINAP-US-2014-105116

PATIENT
  Sex: Male
  Weight: 86 kg

DRUGS (1)
  1. NAGLAZYME [Suspect]
     Active Substance: GALSULFASE
     Indication: MUCOPOLYSACCHARIDOSIS
     Dosage: 90 ML, QW
     Route: 041
     Dates: start: 20060427

REACTIONS (1)
  - Respiratory disorder [Recovering/Resolving]
